FAERS Safety Report 4927616-8 (Version None)
Quarter: 2006Q1

REPORT INFORMATION
  Report Type: 
  Country: None (occurrence: None)
  Receive Date: 20060228
  Receipt Date: 20051010
  Transmission Date: 20060701
  Serious: Yes (Hospitalization, Disabling)
  Sender: FDA-Public Use
  Company Number: US-MERCK-0510USA07307

PATIENT
  Age: 50 Year
  Sex: Male
  Weight: 120 kg

DRUGS (25)
  1. VIOXX [Suspect]
     Indication: BACK PAIN
     Route: 048
     Dates: start: 19990101, end: 20020320
  2. VIOXX [Suspect]
     Indication: PAIN
     Route: 048
     Dates: start: 19990101, end: 20020320
  3. AMBIEN [Concomitant]
     Route: 065
  4. ASPIRIN [Concomitant]
     Route: 065
  5. ATENOLOL [Concomitant]
     Route: 065
  6. CAPTOPRIL [Concomitant]
     Route: 065
  7. DOCUSATE SODIUM [Concomitant]
     Route: 065
  8. DURAGESIC-100 [Concomitant]
     Route: 065
  9. FLOMAX (MORNIFLUMATE) [Concomitant]
     Route: 065
  10. FUROSEMIDE [Concomitant]
     Route: 065
  11. GABITRIL [Concomitant]
     Route: 065
  12. HYDROMORPHONE HYDROCHLORIDE [Concomitant]
     Route: 065
  13. [THERAPY UNSPECIFIED] [Concomitant]
     Route: 065
  14. K-DUR 10 [Concomitant]
     Route: 065
  15. KEFLEX [Concomitant]
     Route: 065
  16. LIPITOR [Concomitant]
     Route: 065
  17. MERIDIA [Concomitant]
     Route: 065
  18. METHOCARBAMOL [Concomitant]
     Route: 065
  19. NORCO [Concomitant]
     Route: 065
  20. NORVASC [Concomitant]
     Route: 065
  21. OXYCONTIN [Concomitant]
     Route: 065
  22. ROXICODONE [Concomitant]
     Route: 065
  23. SENNA-C PLUS [Concomitant]
     Route: 065
  24. VIAGRA [Concomitant]
     Route: 065
  25. [THERAPY UNSPECIFIED] [Concomitant]
     Route: 065

REACTIONS (13)
  - ANGINA UNSTABLE [None]
  - ARTERIOSCLEROSIS CORONARY ARTERY [None]
  - CARDIOVASCULAR DISORDER [None]
  - CHEST PAIN [None]
  - CORONARY ARTERY DISEASE [None]
  - DYSPNOEA [None]
  - HYPOKALAEMIA [None]
  - INJURY [None]
  - MYOCARDIAL INFARCTION [None]
  - OEDEMA PERIPHERAL [None]
  - RENAL DISORDER [None]
  - RENAL MASS [None]
  - SPINAL CORD NEOPLASM [None]
